FAERS Safety Report 6079097-1 (Version None)
Quarter: 2009Q1

REPORT INFORMATION
  Report Type: 
  Country: None (occurrence: None)
  Receive Date: 20090216
  Receipt Date: 20090206
  Transmission Date: 20090719
  Serious: Yes (Hospitalization)
  Sender: FDA-Public Use
  Company Number: A0713314A

PATIENT
  Age: 65 Year
  Sex: Male
  Weight: 81.8 kg

DRUGS (9)
  1. AVANDIA [Suspect]
     Dosage: 4MG PER DAY
     Route: 048
     Dates: start: 20050202, end: 20060301
  2. AVANDAMET [Suspect]
     Route: 048
  3. METFORMIN HCL [Concomitant]
     Dates: start: 20050502, end: 20060208
  4. AMARYL [Concomitant]
     Dates: start: 20050525, end: 20060417
  5. GLUCOPHAGE [Concomitant]
  6. LOTREL [Concomitant]
  7. VYTORIN [Concomitant]
  8. CLONIDINE HCL [Concomitant]
  9. DIOVAN [Concomitant]

REACTIONS (5)
  - CARDIAC FAILURE CONGESTIVE [None]
  - DIABETIC RETINOPATHY [None]
  - HEART INJURY [None]
  - MACULAR DEGENERATION [None]
  - MYOCARDIAL INFARCTION [None]
